FAERS Safety Report 18700208 (Version 1)
Quarter: 2021Q1

REPORT INFORMATION
  Report Type: Spontaneous
  Country: US (occurrence: US)
  Receive Date: 20210105
  Receipt Date: 20210105
  Transmission Date: 20210419
  Serious: No
  Sender: FDA-Public Use
  Company Number: US-BAYER-2021-002308

PATIENT
  Age: 42 Year
  Sex: Male

DRUGS (2)
  1. ALEVE PM [Suspect]
     Active Substance: DIPHENHYDRAMINE HYDROCHLORIDE\NAPROXEN SODIUM
     Indication: PAIN
     Dosage: 1 DF, BID
     Route: 048
     Dates: start: 20210103, end: 20210103
  2. ADVIL [Suspect]
     Active Substance: IBUPROFEN

REACTIONS (2)
  - Hot flush [Recovered/Resolved]
  - Inappropriate schedule of product administration [None]

NARRATIVE: CASE EVENT DATE: 20210103
